FAERS Safety Report 21533154 (Version 1)
Quarter: 2022Q4

REPORT INFORMATION
  Report Type: Spontaneous
  Country: JP (occurrence: JP)
  Receive Date: 20221101
  Receipt Date: 20221101
  Transmission Date: 20230113
  Serious: Yes (Other)
  Sender: FDA-Public Use
  Company Number: JP-MLMSERVICE-20221017-3863156-1

PATIENT
  Age: 66 Year
  Sex: Male

DRUGS (6)
  1. ETOPOSIDE [Suspect]
     Active Substance: ETOPOSIDE
     Indication: Hormone-refractory prostate cancer
     Dosage: 100 MG/M2/DAY, DAYS 1-3, REPEATED EVERY 3 WEEKS
  2. CISPLATIN [Suspect]
     Active Substance: CISPLATIN
     Indication: Hormone-refractory prostate cancer
     Dosage: 80 MG/M2/DAY, DAY 1, REPEATED EVERY 3 WEEKS
  3. BICALUTAMIDE [Concomitant]
     Active Substance: BICALUTAMIDE
     Indication: Prostate cancer metastatic
     Dates: start: 2019
  4. LEUPROLIDE ACETATE [Concomitant]
     Active Substance: LEUPROLIDE ACETATE
     Indication: Prostate cancer metastatic
     Dates: start: 2019
  5. ETOPOSIDE [Suspect]
     Active Substance: ETOPOSIDE
     Indication: Hormone-refractory prostate cancer
     Dosage: 100 MG/M2/DAY, DAYS 1-3, REPEATED EVERY 3 WEEKS
  6. CISPLATIN [Suspect]
     Active Substance: CISPLATIN
     Indication: Prostate cancer metastatic
     Dosage: 80 MG/M2/DAY, DAY 1, REPEATED EVERY 3 WEEKS

REACTIONS (1)
  - Renal impairment [Unknown]
